FAERS Safety Report 15275890 (Version 1)
Quarter: 2018Q3

REPORT INFORMATION
  Report Type: Spontaneous
  Country: DK (occurrence: DK)
  Receive Date: 20180814
  Receipt Date: 20180814
  Transmission Date: 20181010
  Serious: Yes (Hospitalization)
  Sender: FDA-Public Use
  Company Number: DK-MYLANLABS-2018M1061324

PATIENT
  Age: 71 Year
  Sex: Male
  Weight: 80 kg

DRUGS (1)
  1. OXALIPLATIN. [Suspect]
     Active Substance: OXALIPLATIN
     Indication: MUCINOUS ADENOCARCINOMA OF APPENDIX
     Dosage: 92 MG/M2 PER SESSION
     Route: 033
     Dates: start: 201611, end: 201703

REACTIONS (1)
  - Peritoneal disorder [Recovering/Resolving]
